FAERS Safety Report 20076793 (Version 1)
Quarter: 2021Q4

REPORT INFORMATION
  Report Type: Spontaneous
  Country: US (occurrence: US)
  Receive Date: 20211116
  Receipt Date: 20211116
  Transmission Date: 20220303
  Serious: No
  Sender: FDA-Public Use
  Company Number: US-BoehringerIngelheim-2021-BI-138152

PATIENT

DRUGS (2)
  1. MOBIC [Suspect]
     Active Substance: MELOXICAM
     Indication: Arthritis
  2. CELEBREX [Concomitant]
     Active Substance: CELECOXIB
     Indication: Arthritis

REACTIONS (1)
  - Drug ineffective [Unknown]
